FAERS Safety Report 6094720-3 (Version None)
Quarter: 2009Q1

REPORT INFORMATION
  Report Type: 
  Country: None (occurrence: None)
  Receive Date: 20090226
  Receipt Date: 20090218
  Transmission Date: 20090719
  Serious: Yes (Hospitalization)
  Sender: FDA-Public Use
  Company Number: CA-AMGEN-US332893

PATIENT
  Sex: Male

DRUGS (7)
  1. PANITUMUMAB [Suspect]
     Indication: COLORECTAL CANCER
     Route: 042
     Dates: start: 20070820
  2. LOVENOX [Suspect]
     Dates: start: 20081009, end: 20081019
  3. LOVENOX [Suspect]
     Dates: start: 20081020
  4. UNSPECIFIED INTRAVENOUS FLUIDS [Concomitant]
     Dates: start: 20090201
  5. FOLINIC ACID [Concomitant]
     Dates: start: 20070820
  6. FLUOROURACIL [Concomitant]
     Dates: start: 20070820
  7. OXALIPLATIN [Concomitant]
     Dates: start: 20070820

REACTIONS (1)
  - GASTROINTESTINAL HAEMORRHAGE [None]
